FAERS Safety Report 18377072 (Version 1)
Quarter: 2020Q4

REPORT INFORMATION
  Report Type: Spontaneous
  Country: GB (occurrence: GB)
  Receive Date: 20201013
  Receipt Date: 20201013
  Transmission Date: 20210114
  Serious: Yes (Life-Threatening, Hospitalization)
  Sender: FDA-Public Use
  Company Number: GB-MYLANLABS-2020M1086003

PATIENT
  Age: 49 Year
  Sex: Female

DRUGS (2)
  1. DOPAMINE [Suspect]
     Active Substance: DOPAMINE HYDROCHLORIDE
     Indication: CARDIAC DISORDER
     Dosage: 5 UG/KG/MIN
     Route: 065
  2. EPINEPHRINE. [Suspect]
     Active Substance: EPINEPHRINE
     Indication: CARDIAC DYSFUNCTION
     Dosage: 0.05 UG/KG/MIN
     Route: 065

REACTIONS (1)
  - Drug ineffective [Unknown]
